FAERS Safety Report 14031272 (Version 1)
Quarter: 2017Q4

REPORT INFORMATION
  Report Type: Spontaneous
  Country: US (occurrence: US)
  Receive Date: 20171002
  Receipt Date: 20171002
  Transmission Date: 20180321
  Serious: Yes (Other)
  Sender: FDA-Public Use
  Company Number: US-BAYER-2017-186791

PATIENT
  Age: 26 Year
  Sex: Female
  Weight: 65.76 kg

DRUGS (1)
  1. MIRENA [Suspect]
     Active Substance: LEVONORGESTREL
     Indication: CONTRACEPTION
     Dosage: 20 MCG/24HR, CONT
     Route: 015
     Dates: start: 201206, end: 20121027

REACTIONS (8)
  - Vaginal haemorrhage [Recovering/Resolving]
  - Abdominal pain lower [None]
  - Medical device discomfort [Recovering/Resolving]
  - Vulvovaginal pain [Recovering/Resolving]
  - Device dislocation [Recovering/Resolving]
  - Post procedural discomfort [Recovering/Resolving]
  - Genital haemorrhage [Recovering/Resolving]
  - Pain [Recovering/Resolving]

NARRATIVE: CASE EVENT DATE: 2012
